FAERS Safety Report 8302139-7 (Version None)
Quarter: 2012Q2

REPORT INFORMATION
  Report Type: 
  Country: None (occurrence: None)
  Receive Date: 20120420
  Receipt Date: 20120410
  Transmission Date: 20120825
  Serious: Yes (Death)
  Sender: FDA-Public Use
  Company Number: NL-BRISTOL-MYERS SQUIBB COMPANY-16538019

PATIENT
  Age: 55 Year
  Sex: Male

DRUGS (6)
  1. VINORELBINE [Suspect]
     Indication: NON-SMALL CELL LUNG CANCER
  2. MITOMYCIN [Suspect]
     Indication: NON-SMALL CELL LUNG CANCER
  3. DOCETAXEL [Suspect]
     Indication: NON-SMALL CELL LUNG CANCER
  4. GEMCITABINE [Suspect]
     Indication: NON-SMALL CELL LUNG CANCER
  5. IFOSFAMIDE [Suspect]
     Indication: NON-SMALL CELL LUNG CANCER
  6. ERLOTINIB HYDROCHLORIDE [Suspect]
     Indication: NON-SMALL CELL LUNG CANCER

REACTIONS (1)
  - INTERSTITIAL LUNG DISEASE [None]
